FAERS Safety Report 11756833 (Version 3)
Quarter: 2015Q4

REPORT INFORMATION
  Report Type: Spontaneous
  Country: US (occurrence: US)
  Receive Date: 20151120
  Receipt Date: 20151230
  Transmission Date: 20160304
  Serious: Yes (Other)
  Sender: FDA-Public Use
  Company Number: US-BEH-2015055837

PATIENT
  Age: 64 Year
  Sex: Female
  Weight: 99 kg

DRUGS (19)
  1. HIZENTRA [Suspect]
     Active Substance: HUMAN IMMUNOGLOBULIN G
     Indication: ESSENTIAL HYPERTENSION
     Dosage: 4 GM 20 ML VIAL
     Route: 058
     Dates: start: 20100708
  2. HIZENTRA [Suspect]
     Active Substance: HUMAN IMMUNOGLOBULIN G
     Indication: HYPERCHOLESTEROLAEMIA
     Dosage: 4 GM 20 ML VIAL
     Route: 058
     Dates: start: 20100708
  3. ANASTROZOLE. [Concomitant]
     Active Substance: ANASTROZOLE
  4. NORVASC [Concomitant]
     Active Substance: AMLODIPINE BESYLATE
  5. NOVOLIN R [Concomitant]
     Active Substance: INSULIN HUMAN
  6. CALCIUM [Concomitant]
     Active Substance: CALCIUM
  7. ACETAMINOPHEN. [Concomitant]
     Active Substance: ACETAMINOPHEN
  8. HIZENTRA [Suspect]
     Active Substance: HUMAN IMMUNOGLOBULIN G
     Indication: IMMUNODEFICIENCY COMMON VARIABLE
     Route: 058
     Dates: start: 20100708
  9. LIPITOR [Concomitant]
     Active Substance: ATORVASTATIN CALCIUM
  10. VITAMIN D3 [Concomitant]
     Active Substance: CHOLECALCIFEROL
  11. METFORMIN [Concomitant]
     Active Substance: METFORMIN HYDROCHLORIDE
  12. CLARITIN [Concomitant]
     Active Substance: LORATADINE
  13. DIPHENHYDRAMINE. [Concomitant]
     Active Substance: DIPHENHYDRAMINE
  14. GLIMEPIRIDE. [Concomitant]
     Active Substance: GLIMEPIRIDE
  15. LISINOPRIL. [Concomitant]
     Active Substance: LISINOPRIL
  16. ASPIRIN. [Concomitant]
     Active Substance: ASPIRIN
  17. EPIPEN [Concomitant]
     Active Substance: EPINEPHRINE
  18. NOVOLIN N [Concomitant]
     Active Substance: INSULIN HUMAN
  19. HYDROCHLOROTHIAZIDE. [Concomitant]
     Active Substance: HYDROCHLOROTHIAZIDE

REACTIONS (3)
  - Post procedural infection [Unknown]
  - Eye infection [Unknown]
  - Cataract operation [Recovered/Resolved]

NARRATIVE: CASE EVENT DATE: 20151110
